FAERS Safety Report 4628420-0 (Version None)
Quarter: 2005Q2

REPORT INFORMATION
  Report Type: 
  Country: None (occurrence: None)
  Receive Date: 20050406
  Receipt Date: 20050328
  Transmission Date: 20051028
  Serious: Yes (Death)
  Sender: FDA-Public Use
  Company Number: US-NOVOPROD-243167

PATIENT
  Age: 6 Year
  Sex: Male

DRUGS (1)
  1. NOVOSEVEN [Suspect]
     Indication: COAGULOPATHY
     Dosage: 13.2 MG, UNK
     Route: 042

REACTIONS (1)
  - CONCOMITANT DISEASE PROGRESSION [None]
